FAERS Safety Report 16452043 (Version 16)
Quarter: 2022Q2

REPORT INFORMATION
  Report Type: Report from Study
  Country: GB (occurrence: GB)
  Receive Date: 20190619
  Receipt Date: 20220629
  Transmission Date: 20220721
  Serious: Yes (Hospitalization)
  Sender: FDA-Public Use
  Company Number: GB-EMA-DD-20180425-NSINGHEVHP-174913

PATIENT
  Age: 46 Year
  Sex: Female

DRUGS (63)
  1. TRASTUZUMAB [Suspect]
     Active Substance: TRASTUZUMAB
     Indication: HER2 positive breast cancer
     Dosage: 600 MILLIGRAM, Q3W/20-APR-2015
     Route: 041
  2. TRASTUZUMAB [Suspect]
     Active Substance: TRASTUZUMAB
     Indication: Breast cancer metastatic
  3. DOCETAXEL [Suspect]
     Active Substance: DOCETAXEL
     Indication: Breast cancer metastatic
     Dosage: 150 MILLIGRAM, Q3W (START:21-APR-2015)
     Route: 042
     Dates: end: 20150421
  4. DOCETAXEL [Suspect]
     Active Substance: DOCETAXEL
     Dosage: 120 MILLIGRAM, Q3W (START:12-MAY-2015)
     Route: 042
     Dates: end: 20150804
  5. PERTUZUMAB [Suspect]
     Active Substance: PERTUZUMAB
     Indication: HER2 positive breast cancer
     Dosage: 840 MILLIGRAM, Q3W/20-APR-2015
     Route: 042
  6. PERTUZUMAB [Suspect]
     Active Substance: PERTUZUMAB
     Indication: Breast cancer metastatic
     Dosage: 420 MILLIGRAM, Q3W/20-APR-2015
     Route: 042
  7. LANOLIN\LIGHT MINERAL OIL\PARAFFIN [Concomitant]
     Active Substance: LANOLIN\LIGHT MINERAL OIL\PARAFFIN
     Indication: Pruritus
     Dosage: 1 TABLESPOON (START:15-MAY-2015)
     Route: 061
  8. LOPERAMIDE [Concomitant]
     Active Substance: LOPERAMIDE
     Indication: Product used for unknown indication
     Dosage: 2 MILLIGRAM, PRN (START:16-MAY-2015)
     Route: 048
     Dates: end: 20150516
  9. MEGACE [Concomitant]
     Active Substance: MEGESTROL ACETATE
     Indication: Menopausal symptoms
     Dosage: 80 MILLIGRAM (START:01-JUN-2015)
     Route: 048
  10. DENOSUMAB [Concomitant]
     Active Substance: DENOSUMAB
     Dosage: 120 MILLIGRAM, MONTHLY (START:23-JUN-2015)
     Route: 058
     Dates: end: 20170508
  11. HYDROCORTISONE [Concomitant]
     Active Substance: HYDROCORTISONE
     Indication: Eczema
     Dosage: 1 PERCENT CREAM
     Route: 065
  12. CALCEOS [Concomitant]
     Active Substance: CALCIUM CARBONATE\CHOLECALCIFEROL
     Indication: Product used for unknown indication
     Dosage: 1 DF, QD (START:13-JUL-2015)
     Route: 048
     Dates: end: 20150824
  13. CALCEOS [Concomitant]
     Active Substance: CALCIUM CARBONATE\CHOLECALCIFEROL
     Dosage: 1 DF, QD (START:13-JUL-2015)
     Route: 048
     Dates: end: 20150824
  14. CALCIUM CARBONATE\CHOLECALCIFEROL [Concomitant]
     Active Substance: CALCIUM CARBONATE\CHOLECALCIFEROL
     Indication: Product used for unknown indication
     Dosage: 2DF, QD (START:23-JUN-2015)
     Route: 048
     Dates: end: 20150625
  15. CALCIUM CARBONATE\CHOLECALCIFEROL [Concomitant]
     Active Substance: CALCIUM CARBONATE\CHOLECALCIFEROL
     Dosage: 0.5 DAY (START:23-JUN-2015)
     Route: 048
     Dates: end: 20150625
  16. CALCIUM CARBONATE\CHOLECALCIFEROL [Concomitant]
     Active Substance: CALCIUM CARBONATE\CHOLECALCIFEROL
     Dosage: 0.5 MILLIGRAM, QD, (0.5 MILLIGRAM)
     Route: 048
  17. OMEPRAZOLE [Concomitant]
     Active Substance: OMEPRAZOLE
     Indication: Gastrooesophageal reflux disease
     Dosage: 20 MILLIGRAM (START:22-JUN-2015)
     Route: 048
  18. GAVISCON [Concomitant]
     Active Substance: ALUMINUM HYDROXIDE\MAGNESIUM CARBONATE
     Indication: Product used for unknown indication
     Dosage: UNK
     Route: 065
  19. POLYETHYLENE GLYCOL 3350\POTASSIUM CHLORIDE\SODIUM BICARBONATE\SODIUM [Concomitant]
     Active Substance: POLYETHYLENE GLYCOL 3350\POTASSIUM CHLORIDE\SODIUM BICARBONATE\SODIUM CHLORIDE
     Indication: Influenza
     Dosage: 1 SACHET (2DF, QD) (START:19-FEB-2018)
     Route: 048
     Dates: end: 20180220
  20. POLYETHYLENE GLYCOL 3350\POTASSIUM CHLORIDE\SODIUM BICARBONATE\SODIUM [Concomitant]
     Active Substance: POLYETHYLENE GLYCOL 3350\POTASSIUM CHLORIDE\SODIUM BICARBONATE\SODIUM CHLORIDE
     Dosage: 0.5 DAY(1 SACHET) (START:19-FEB-2018)
     Route: 048
     Dates: end: 20180220
  21. POLYETHYLENE GLYCOL 3350\POTASSIUM CHLORIDE\SODIUM BICARBONATE\SODIUM [Concomitant]
     Active Substance: POLYETHYLENE GLYCOL 3350\POTASSIUM CHLORIDE\SODIUM BICARBONATE\SODIUM CHLORIDE
     Dosage: 2 DOSAGE FORM, QD, (1 SACHET (2DF, QD))
     Route: 048
     Dates: start: 20180219, end: 20180220
  22. IBUPROFEN [Concomitant]
     Active Substance: IBUPROFEN
     Indication: Spinal pain
     Dosage: 400 MILLIGRAM, PRN (START:29-DEC-2016)
     Route: 048
  23. AMOXICILLIN\CLAVULANATE POTASSIUM [Concomitant]
     Active Substance: AMOXICILLIN\CLAVULANATE POTASSIUM
     Indication: Influenza
     Dosage: 1875 MILLIGRAM, QD (START:25-FEB-2018)
     Route: 048
     Dates: end: 20180225
  24. AMOXICILLIN\CLAVULANATE POTASSIUM [Concomitant]
     Active Substance: AMOXICILLIN\CLAVULANATE POTASSIUM
     Dosage: 625 MILLIGRAM, QD (START:20-FEB-2018)
     Route: 048
     Dates: end: 20180225
  25. AMOXICILLIN\CLAVULANATE POTASSIUM [Concomitant]
     Active Substance: AMOXICILLIN\CLAVULANATE POTASSIUM
     Dosage: 1875 MILLIGRAM, QD (START:20-FEB-2018)
     Route: 048
     Dates: end: 20180225
  26. ENOXAPARIN [Concomitant]
     Active Substance: ENOXAPARIN
     Indication: Influenza
     Dosage: 40 MILLIGRAM (START:19-FEB-2018 )
     Route: 058
     Dates: end: 20180220
  27. DENOSUMAB [Concomitant]
     Active Substance: DENOSUMAB
     Indication: Product used for unknown indication
     Dosage: 120 MILLIGRAM, BID (START:15-JAN-2018)
     Route: 048
  28. DENOSUMAB [Concomitant]
     Active Substance: DENOSUMAB
     Dosage: 120 MILLIGRAM (START:15-JAN-2018)
     Route: 048
  29. DENOSUMAB [Concomitant]
     Active Substance: DENOSUMAB
     Dosage: 240 MILLIGRAM, QD (START:15-JAN-2018)
     Route: 048
  30. DENOSUMAB [Concomitant]
     Active Substance: DENOSUMAB
     Dosage: 240 MILLIGRAM, QD, (START DATE: 15-JAN-2018, 120 MG, BID)
     Route: 048
  31. SENNA [Concomitant]
     Active Substance: SENNA LEAF\SENNOSIDES\SENNOSIDES A AND B
     Indication: Influenza
     Dosage: 1 SACHET (1DF, QD) (START:19-FEB-2018)
     Route: 048
     Dates: end: 20180220
  32. TAMIFLU [Concomitant]
     Active Substance: OSELTAMIVIR PHOSPHATE
     Indication: Influenza
     Dosage: 75 MILLIGRAM, QD (START:19-FEB-2018)
     Route: 048
     Dates: end: 20180226
  33. TAMIFLU [Concomitant]
     Active Substance: OSELTAMIVIR PHOSPHATE
     Dosage: 150 MILLIGRAM, QD (START:19-FEB-2018)
     Route: 048
     Dates: end: 20180226
  34. ACYCLOVIR [Concomitant]
     Active Substance: ACYCLOVIR
     Indication: Genital herpes
     Dosage: 200 MILLIGRAM, QD (START:11-FEB-2017)
     Route: 048
     Dates: end: 20170218
  35. ACYCLOVIR [Concomitant]
     Active Substance: ACYCLOVIR
     Dosage: 200 MILLIGRAM, QID (START:11-FEB-2017)
     Route: 048
     Dates: end: 20170218
  36. ACYCLOVIR [Concomitant]
     Active Substance: ACYCLOVIR
     Dosage: 800 MILLIGRAM, QD (START:11-FEB-2017)
     Route: 048
     Dates: end: 20170218
  37. ACYCLOVIR [Concomitant]
     Active Substance: ACYCLOVIR
     Dosage: 800 MILLIGRAM, QD, (START DATE: 11-FEB-2017, 200 MILLIGRAM, QID )
     Route: 048
     Dates: end: 20170218
  38. AMOXIL 12 H [Concomitant]
     Indication: Lower respiratory tract infection
     Dosage: 500 MILLIGRAM, QD (START:27-DEC-2017)
     Route: 048
     Dates: end: 20180102
  39. AMOXICILLIN [Concomitant]
     Active Substance: AMOXICILLIN
     Indication: Influenza
     Dosage: 625 MILLIGRAM, QD (START:20-FEB-2018)
     Route: 048
     Dates: end: 20180225
  40. AMOXICILLIN [Concomitant]
     Active Substance: AMOXICILLIN
     Indication: Lower respiratory tract infection
     Dosage: 500 MILLIGRAM, QD (START:27-DEC-2017)
     Route: 048
     Dates: end: 20180102
  41. DOMPERIDONE [Concomitant]
     Active Substance: DOMPERIDONE
     Dosage: 10 MILLIGRAM, QD
     Route: 048
     Dates: start: 20150420, end: 20150427
  42. RANITIDINE [Concomitant]
     Active Substance: RANITIDINE
     Dosage: 150 MILLIGRAM, QD
     Route: 048
     Dates: start: 20150421
  43. CODEINE [Concomitant]
     Active Substance: CODEINE
     Dosage: 30 MILLIGRAM
     Route: 048
     Dates: start: 20160816
  44. CODEINE [Concomitant]
     Active Substance: CODEINE
     Dosage: 30 MILLIGRAM
     Route: 048
     Dates: start: 20151221, end: 20160425
  45. SODIUM CHLORIDE [Concomitant]
     Active Substance: SODIUM CHLORIDE
     Indication: Abdominal pain
     Dosage: 1000 MILLILITER, PRN, (1000 ML, AS NEEDED)
     Route: 042
     Dates: start: 20160125, end: 20160125
  46. ALTHAEA EXTRACT [Concomitant]
     Dosage: UNK
     Route: 061
     Dates: start: 20181112
  47. ZOPICLONE [Concomitant]
     Active Substance: ZOPICLONE
     Dosage: 3.75 MILLIGRAM
     Route: 048
     Dates: start: 20151019
  48. AMOXICILLIN\CLAVULANATE POTASSIUM [Concomitant]
     Active Substance: AMOXICILLIN\CLAVULANATE POTASSIUM
     Indication: Influenza
     Dosage: 625 MILLIGRAM, QD, (625 MG, QD)
     Route: 048
     Dates: start: 20180220, end: 20180225
  49. AMOXIL [Concomitant]
     Active Substance: AMOXICILLIN
     Indication: Lower respiratory tract infection
     Dosage: 500 MILLIGRAM, QD, (500 MG, QD)
     Route: 048
     Dates: start: 20171227, end: 20180102
  50. ACETAMINOPHEN [Concomitant]
     Active Substance: ACETAMINOPHEN
     Dosage: 1 GRAM, QD
     Route: 048
     Dates: start: 20180218, end: 20180220
  51. ACETAMINOPHEN [Concomitant]
     Active Substance: ACETAMINOPHEN
     Dosage: 1 GRAM, QD
     Route: 048
     Dates: start: 20150420, end: 20180217
  52. ACETAMINOPHEN [Concomitant]
     Active Substance: ACETAMINOPHEN
     Dosage: 1 GRAM, QD
     Route: 048
     Dates: start: 20150427, end: 20150505
  53. PIPERACILLIN SODIUM\TAZOBACTAM SODIUM [Concomitant]
     Active Substance: PIPERACILLIN SODIUM\TAZOBACTAM SODIUM
     Dosage: 4.5 GRAM, QD
     Route: 042
     Dates: start: 20180218, end: 20180220
  54. PIPERACILLIN SODIUM\TAZOBACTAM SODIUM [Concomitant]
     Active Substance: PIPERACILLIN SODIUM\TAZOBACTAM SODIUM
     Dosage: 4.5 GRAM, QD
     Route: 042
     Dates: start: 20150429
  55. Covid-19 vaccine [Concomitant]
     Dosage: 30 MICROGRAM
     Route: 030
     Dates: start: 20210204, end: 20210204
  56. Covid-19 vaccine [Concomitant]
     Dosage: 30 MICROGRAM
     Route: 030
     Dates: start: 20210422, end: 20210422
  57. NAPROXEN [Concomitant]
     Active Substance: NAPROXEN
     Dosage: 500 MILLIGRAM, QD
     Route: 048
     Dates: start: 20180218, end: 20180220
  58. NAPROXEN [Concomitant]
     Active Substance: NAPROXEN
     Dosage: 500 MILLIGRAM, QD
     Route: 048
     Dates: start: 2015, end: 20160314
  59. NAPROXEN [Concomitant]
     Active Substance: NAPROXEN
     Dosage: 500 MILLIGRAM, QD
     Route: 048
     Dates: start: 2015, end: 20160314
  60. NAPROXEN [Concomitant]
     Active Substance: NAPROXEN
     Dosage: 250 MILLIGRAM
     Route: 048
     Dates: start: 2015, end: 20160314
  61. AVEENO [Concomitant]
     Active Substance: DIMETHICONE\HOMOSALATE\OCTINOXATE\OCTISALATE\TITANIUM DIOXIDE
     Dosage: UNK
     Route: 061
     Dates: start: 20190114
  62. IBUPROFEN [Concomitant]
     Active Substance: IBUPROFEN
     Dosage: 200 MILLIGRAM, QD
     Route: 048
     Dates: start: 20150420, end: 20150420
  63. VASELINE PURE [Concomitant]
     Active Substance: PETROLATUM
     Dosage: UNK, (1 TBSP TABLESPOON)
     Route: 061
     Dates: start: 20160816

REACTIONS (19)
  - Mood swings [Recovered/Resolved]
  - Night sweats [Not Recovered/Not Resolved]
  - Glossodynia [Unknown]
  - Sleep disorder [Unknown]
  - Gastrooesophageal reflux disease [Recovered/Resolved]
  - Hypoaesthesia oral [Recovered/Resolved]
  - Lethargy [Not Recovered/Not Resolved]
  - Eczema [Recovered/Resolved]
  - Ovarian cyst [Recovered/Resolved]
  - Gastritis [Recovered/Resolved]
  - Decreased appetite [Recovered/Resolved]
  - Headache [Recovered/Resolved]
  - Epistaxis [Not Recovered/Not Resolved]
  - Dysgeusia [Recovered/Resolved]
  - Neutropenic sepsis [Recovered/Resolved]
  - Nausea [Recovered/Resolved]
  - Constipation [Recovered/Resolved]
  - Arthralgia [Recovered/Resolved with Sequelae]
  - Abdominal pain [Recovered/Resolved]

NARRATIVE: CASE EVENT DATE: 20150420
